FAERS Safety Report 16693236 (Version 1)
Quarter: 2019Q3

REPORT INFORMATION
  Report Type: Spontaneous
  Country: CA (occurrence: CA)
  Receive Date: 20190812
  Receipt Date: 20190812
  Transmission Date: 20191004
  Serious: Yes (Hospitalization, Other)
  Sender: FDA-Public Use
  Company Number: CA-SA-2019SA210527

PATIENT
  Age: 75 Year
  Sex: Female

DRUGS (59)
  1. ARAVA [Suspect]
     Active Substance: LEFLUNOMIDE
     Indication: PRODUCT USED FOR UNKNOWN INDICATION
     Dosage: 20.0 MG, QD
     Route: 048
  2. ACTEMRA [Suspect]
     Active Substance: TOCILIZUMAB
     Indication: RHEUMATOID ARTHRITIS
     Dosage: 488.0 MG, QD
     Route: 042
  3. NORTRIPTYLINE [Concomitant]
     Active Substance: NORTRIPTYLINE
  4. OXYCODONE TEREPHTHALATE [Concomitant]
     Active Substance: OXYCODONE TEREPHTHALATE
  5. PREDNISONE. [Concomitant]
     Active Substance: PREDNISONE
  6. VITAMIN C [Concomitant]
     Active Substance: ASCORBIC ACID
  7. PLAQUENIL [Suspect]
     Active Substance: HYDROXYCHLOROQUINE SULFATE
     Indication: RHEUMATOID ARTHRITIS
     Dosage: 400.0 MG, QD
     Route: 065
  8. CELEBREX [Suspect]
     Active Substance: CELECOXIB
     Indication: ARTHRITIS
     Route: 048
  9. OXYCODONE AND ACETAMINOPHEN [Concomitant]
     Active Substance: ACETAMINOPHEN\OXYCODONE HYDROCHLORIDE
     Dosage: UNK
  10. PYRIDOXINE [Concomitant]
     Active Substance: PYRIDOXINE
  11. VITAMIN E [Concomitant]
     Active Substance: .ALPHA.-TOCOPHEROL
  12. XELJANZ [Concomitant]
     Active Substance: TOFACITINIB CITRATE
  13. ACETAMINOPHEN. [Concomitant]
     Active Substance: ACETAMINOPHEN
  14. ACTONEL [Concomitant]
     Active Substance: RISEDRONATE SODIUM
  15. GABAPENTIN. [Suspect]
     Active Substance: GABAPENTIN
     Indication: PRODUCT USED FOR UNKNOWN INDICATION
     Dosage: 100.0 MG, BID
     Route: 048
  16. HYDROXYCHLOROQUINE SULFATE. [Suspect]
     Active Substance: HYDROXYCHLOROQUINE SULFATE
     Indication: PRODUCT USED FOR UNKNOWN INDICATION
     Dosage: 400.0 MG, QD
  17. ERGOCALCIFEROL. [Concomitant]
     Active Substance: ERGOCALCIFEROL
  18. LOMOTIL [LOPERAMIDE HYDROCHLORIDE] [Concomitant]
  19. LOPERAMIDE [Concomitant]
     Active Substance: LOPERAMIDE
  20. NASONEX [Concomitant]
     Active Substance: MOMETASONE FUROATE
     Dosage: SPRAY, METERED DOSE
  21. OMEGA-3 [SALMO SALAR OIL] [Concomitant]
     Active Substance: ATLANTIC SALMON OIL
  22. VITAMIN D [VITAMIN D NOS] [Concomitant]
     Active Substance: VITAMIN D NOS
  23. ACLASTA [Concomitant]
     Active Substance: ZOLEDRONIC ACID
     Route: 042
  24. CELECOXIB. [Suspect]
     Active Substance: CELECOXIB
     Indication: ARTHRITIS
     Route: 048
  25. NORTRIPTYLINE HYDROCHLORIDE. [Suspect]
     Active Substance: NORTRIPTYLINE HYDROCHLORIDE
  26. OXYCODONE HYDROCHLORIDE. [Suspect]
     Active Substance: OXYCODONE HYDROCHLORIDE
     Indication: PRODUCT USED FOR UNKNOWN INDICATION
  27. SULFASALAZINE. [Suspect]
     Active Substance: SULFASALAZINE
     Dosage: 500.0 MG, QD
     Route: 048
  28. FENTANYL TRANSDERMAL SYSTEM [Suspect]
     Active Substance: FENTANYL
     Indication: PRODUCT USED FOR UNKNOWN INDICATION
     Dosage: PATCH
  29. ESOMEPRAZOLE. [Concomitant]
     Active Substance: ESOMEPRAZOLE MAGNESIUM
  30. FISH OIL [Concomitant]
     Active Substance: FISH OIL
  31. LOMOTIL [LOPERAMIDE HYDROCHLORIDE] [Concomitant]
  32. APO-GABAPENTIN [Suspect]
     Active Substance: GABAPENTIN
     Indication: PRODUCT USED FOR UNKNOWN INDICATION
  33. FENTANYL. [Concomitant]
     Active Substance: FENTANYL
     Indication: PRODUCT USED FOR UNKNOWN INDICATION
  34. VITAMIN A [RETINOL] [Concomitant]
     Active Substance: RETINOL
  35. VITAMIN B12 [VITAMIN B12 NOS] [Concomitant]
     Active Substance: CYANOCOBALAMIN
  36. METHOTREXATE. [Suspect]
     Active Substance: METHOTREXATE
     Indication: RHEUMATOID ARTHRITIS
     Dosage: 1.0 DF, QW
     Route: 058
  37. ORENCIA [Suspect]
     Active Substance: ABATACEPT
     Dosage: 1.0 DF, QW
     Route: 042
  38. ESOMEPRAZOLE. [Concomitant]
     Active Substance: ESOMEPRAZOLE MAGNESIUM
  39. FERROUS GLUCONATE [Concomitant]
     Active Substance: FERROUS GLUCONATE
  40. NEXIUM I.V. [Concomitant]
     Active Substance: ESOMEPRAZOLE SODIUM
  41. TRAZODONE [Concomitant]
     Active Substance: TRAZODONE HYDROCHLORIDE
  42. VITAMIN D3 [Concomitant]
     Active Substance: CHOLECALCIFEROL
  43. PLAQUENIL [Suspect]
     Active Substance: HYDROXYCHLOROQUINE SULFATE
     Indication: PRODUCT USED FOR UNKNOWN INDICATION
  44. MYOCHRYSINE [Suspect]
     Active Substance: GOLD SODIUM THIOMALATE
     Indication: RHEUMATOID ARTHRITIS
     Dosage: 50.0 MG, Q3W
     Route: 030
  45. BIOTIN [Concomitant]
     Active Substance: BIOTIN
  46. CALCIUM [Concomitant]
     Active Substance: CALCIUM
  47. GENTEAL [HYPROMELLOSE] [Concomitant]
     Dosage: SOLUTION OPTHALMIC
  48. OMEGA 3-6-9 [FISH OIL] [Concomitant]
  49. OXYCODONE AND ACETAMINOPHEN [Concomitant]
     Active Substance: ACETAMINOPHEN\OXYCODONE HYDROCHLORIDE
     Dosage: UNK
  50. PANTOPRAZOLE [Concomitant]
     Active Substance: PANTOPRAZOLE
  51. THIAMINE HCL [Concomitant]
     Active Substance: THIAMINE HYDROCHLORIDE
  52. TRAZODONE [Concomitant]
     Active Substance: TRAZODONE HYDROCHLORIDE
  53. VITAMIN B3 [Concomitant]
     Active Substance: NIACIN
  54. CELECOXIB. [Suspect]
     Active Substance: CELECOXIB
     Indication: ADENOMATOUS POLYPOSIS COLI
  55. SULFASALAZINE. [Suspect]
     Active Substance: SULFASALAZINE
     Indication: RHEUMATOID ARTHRITIS
     Dosage: 500.0 MG, QD
     Route: 048
  56. ENBREL [Suspect]
     Active Substance: ETANERCEPT
     Indication: RHEUMATOID ARTHRITIS
     Dosage: 50.0 MG, QW
     Route: 058
  57. ORENCIA [Suspect]
     Active Substance: ABATACEPT
     Indication: RHEUMATOID ARTHRITIS
     Dosage: 1.0 DF, QW
     Route: 058
  58. SODIUM [Concomitant]
     Active Substance: SODIUM
  59. TYLENOL [Concomitant]
     Active Substance: ACETAMINOPHEN

REACTIONS (42)
  - Unevaluable event [Unknown]
  - Gastrointestinal disorder [Unknown]
  - Joint swelling [Unknown]
  - Pain in extremity [Unknown]
  - Pleural thickening [Unknown]
  - Drug intolerance [Unknown]
  - Infection [Unknown]
  - Arthralgia [Unknown]
  - Blood magnesium increased [Unknown]
  - Diarrhoea [Unknown]
  - Drug ineffective [Unknown]
  - Pain [Unknown]
  - Renal impairment [Unknown]
  - Rheumatoid arthritis [Unknown]
  - Arthropathy [Unknown]
  - Drug hypersensitivity [Unknown]
  - Bone cyst [Unknown]
  - Crohn^s disease [Unknown]
  - Nausea [Unknown]
  - Treatment failure [Unknown]
  - Blood creatinine increased [Unknown]
  - Dry eye [Unknown]
  - Musculoskeletal stiffness [Unknown]
  - Osteopenia [Unknown]
  - Pleural fibrosis [Unknown]
  - Presbyacusis [Unknown]
  - Skin lesion [Unknown]
  - Sleep disorder [Unknown]
  - Deafness neurosensory [Unknown]
  - Deformity [Unknown]
  - Exostosis [Unknown]
  - Fatigue [Unknown]
  - Hospitalisation [Unknown]
  - Mobility decreased [Unknown]
  - Osteosclerosis [Unknown]
  - Therapeutic product effect decreased [Unknown]
  - Blood potassium increased [Unknown]
  - Cyst [Unknown]
  - Epigastric discomfort [Unknown]
  - Hypersensitivity [Unknown]
  - Myocardial infarction [Unknown]
  - Osteoarthritis [Unknown]
